FAERS Safety Report 6836123-7 (Version None)
Quarter: 2010Q3

REPORT INFORMATION
  Report Type: 
  Country: None (occurrence: None)
  Receive Date: 20100713
  Receipt Date: 20100630
  Transmission Date: 20110219
  Serious: Yes (Other)
  Sender: FDA-Public Use
  Company Number: JP-ROCHE-713633

PATIENT
  Age: 30 Year
  Sex: Male

DRUGS (3)
  1. CELLCEPT [Suspect]
     Indication: RENAL TRANSPLANT
     Dosage: DOSE INCREASED.
     Route: 048
  2. CELLCEPT [Suspect]
     Route: 048
     Dates: start: 20090101
  3. TACROLIMUS [Suspect]
     Indication: RENAL TRANSPLANT
     Route: 048

REACTIONS (2)
  - DIFFUSE LARGE B-CELL LYMPHOMA [None]
  - FOCAL SEGMENTAL GLOMERULOSCLEROSIS [None]
